FAERS Safety Report 17047450 (Version 1)
Quarter: 2019Q4

REPORT INFORMATION
  Report Type: Other
  Country: GB (occurrence: GB)
  Receive Date: 20191119
  Receipt Date: 20191119
  Transmission Date: 20200122
  Serious: Yes (Other)
  Sender: FDA-Public Use
  Company Number: GB-GLENMARK PHARMACEUTICALS-2019GMK044370

PATIENT

DRUGS (1)
  1. MONTELUKAST SODIUM. [Suspect]
     Active Substance: MONTELUKAST SODIUM
     Indication: ASTHMA
     Dosage: 5 MG, UNK
     Route: 048
     Dates: start: 20180202, end: 20181205

REACTIONS (6)
  - Tic [Not Recovered/Not Resolved]
  - Insomnia [Not Recovered/Not Resolved]
  - Obsessive-compulsive personality disorder [Not Recovered/Not Resolved]
  - Sleep terror [Not Recovered/Not Resolved]
  - Separation anxiety disorder [Not Recovered/Not Resolved]
  - Hallucination [Not Recovered/Not Resolved]

NARRATIVE: CASE EVENT DATE: 20180315
